FAERS Safety Report 4947118-2 (Version None)
Quarter: 2006Q1

REPORT INFORMATION
  Report Type: 
  Country: None (occurrence: None)
  Receive Date: 20060201
  Receipt Date: 20051207
  Transmission Date: 20060701
  Serious: No
  Sender: FDA-Public Use
  Company Number: 2005PV005622

PATIENT
  Age: 57 Year
  Sex: Female

DRUGS (3)
  1. BYETTA [Suspect]
     Indication: DIABETES MELLITUS NON-INSULIN-DEPENDENT
     Dosage: 10 MCG; SC
     Route: 058
     Dates: start: 20051207
  2. ANTIBIOTIC [Suspect]
     Dates: start: 20050101
  3. ANTIBIOTICS [Concomitant]

REACTIONS (4)
  - DIZZINESS [None]
  - MALAISE [None]
  - WEIGHT [None]
  - WEIGHT DECREASED [None]
